FAERS Safety Report 12678612 (Version 2)
Quarter: 2016Q3

REPORT INFORMATION
  Report Type: Report from Study
  Country: US (occurrence: US)
  Receive Date: 20160823
  Receipt Date: 20160919
  Transmission Date: 20161109
  Serious: Yes (Other)
  Sender: FDA-Public Use
  Company Number: US-GILEAD-2016-0228885

PATIENT
  Age: 64 Year
  Sex: Male
  Weight: 88 kg

DRUGS (1)
  1. LEDIPASVIR/SOFOSBUVIR [Suspect]
     Active Substance: LEDIPASVIR\SOFOSBUVIR
     Indication: HEPATITIS C
     Dosage: 1 DF, QD
     Route: 048
     Dates: start: 20160613

REACTIONS (2)
  - Rash [Recovered/Resolved]
  - Blepharitis allergic [Recovered/Resolved]

NARRATIVE: CASE EVENT DATE: 20160619
